FAERS Safety Report 11117126 (Version 1)
Quarter: 2015Q2

REPORT INFORMATION
  Report Type: Spontaneous
  Country: US (occurrence: US)
  Receive Date: 20150515
  Receipt Date: 20150515
  Transmission Date: 20150821
  Serious: Yes (Other)
  Sender: FDA-Public Use
  Company Number: US-ASTRAZENECA-2015SE44698

PATIENT
  Age: 58 Year
  Sex: Female
  Weight: 68.5 kg

DRUGS (10)
  1. LIDOCAINE. [Concomitant]
     Active Substance: LIDOCAINE
     Dosage: 1 PATCH OVER THE AFFECTED AREA AND LEAVE IN PLACE FOR 12 HOURS
     Dates: start: 20141222
  2. OXYCONTIN [Concomitant]
     Active Substance: OXYCODONE HYDROCHLORIDE
     Dosage: EVERY 12 HOURS
     Route: 048
     Dates: start: 20141222
  3. ZOFRAN [Concomitant]
     Active Substance: ONDANSETRON HYDROCHLORIDE
     Dosage: 1 DF EVERY 6 HOURS IF NEEDED
     Route: 048
  4. PANTOPRAZOLE SODIUM [Concomitant]
     Route: 048
  5. FASLODEX [Suspect]
     Active Substance: FULVESTRANT
     Dosage: 500 MG, DAY 1, DAY 15, DAY 30
     Route: 030
  6. OXYCODONE-ACETAMINOPHEN [Concomitant]
     Active Substance: ACETAMINOPHEN\OXYCODONE HYDROCHLORIDE
     Indication: PAIN
     Dosage: 7.5-325 MG, 1 DF EVERY 4-6 HOURS AS NEEDED
     Route: 048
  7. TAMSULOSIN HCL [Concomitant]
     Active Substance: TAMSULOSIN
     Route: 048
     Dates: start: 20140521
  8. XGEVA [Concomitant]
     Active Substance: DENOSUMAB
     Dosage: 120 MG/1.7 ML EVERY MONTH
     Route: 058
  9. ATIVAN [Concomitant]
     Active Substance: LORAZEPAM
     Indication: ANXIETY
     Dosage: 2 DF 3 TIMES DAILY AS NEEDED
     Route: 048
     Dates: start: 20141222
  10. MAGNESIUM OXIDE. [Concomitant]
     Active Substance: MAGNESIUM OXIDE
     Route: 048

REACTIONS (5)
  - Metastases to liver [Not Recovered/Not Resolved]
  - Back pain [Unknown]
  - Malignant neoplasm progression [Unknown]
  - Arthralgia [Unknown]
  - Metastases to bone [Unknown]
